FAERS Safety Report 15890922 (Version 1)
Quarter: 2019Q1

REPORT INFORMATION
  Report Type: Spontaneous
  Country: US (occurrence: US)
  Receive Date: 20190130
  Receipt Date: 20190130
  Transmission Date: 20190417
  Serious: No
  Sender: FDA-Public Use
  Company Number: US-PFIZER INC-2018344001

PATIENT
  Age: 66 Year
  Sex: Male
  Weight: 80.73 kg

DRUGS (2)
  1. LYRICA [Suspect]
     Active Substance: PREGABALIN
     Indication: DIABETIC NEUROPATHY
     Dosage: 25 MG (1 CAPSULE), 3X/DAY
     Route: 048
     Dates: start: 2018, end: 2018
  2. LYRICA [Suspect]
     Active Substance: PREGABALIN
     Indication: NEUROPATHY PERIPHERAL
     Dosage: 50 MG (2 CAPSULES), 3X/DAY
     Route: 048
     Dates: start: 2018

REACTIONS (4)
  - Feeling abnormal [Unknown]
  - Vertigo [Not Recovered/Not Resolved]
  - Somnolence [Unknown]
  - Drug effect incomplete [Unknown]

NARRATIVE: CASE EVENT DATE: 2018
